FAERS Safety Report 8335906-4 (Version None)
Quarter: 2012Q2

REPORT INFORMATION
  Report Type: 
  Country: None (occurrence: None)
  Receive Date: 20120504
  Receipt Date: 20120501
  Transmission Date: 20120825
  Serious: No
  Sender: FDA-Public Use
  Company Number: US-PFIZER INC-2012107839

PATIENT
  Sex: Male
  Weight: 86.2 kg

DRUGS (4)
  1. LYRICA [Suspect]
     Dosage: 75 MG, DAILY
     Route: 048
  2. LYRICA [Suspect]
     Indication: PERIPHERAL COLDNESS
     Dosage: 75 MG, 2X/DAY
     Route: 048
  3. TUMS E-X [Concomitant]
     Indication: MINERAL SUPPLEMENTATION
     Dosage: 750 MG, AFTER EVERY MEAL
     Route: 048
  4. LANTHANUM CARBONATE [Concomitant]
     Indication: BLOOD PHOSPHORUS INCREASED
     Dosage: ONE OR TWO CHEWABLE TABLETS OF 1000 MG, AFTER EVERY MEAL
     Route: 048

REACTIONS (1)
  - DRUG INEFFECTIVE [None]
